FAERS Safety Report 23068359 (Version 1)
Quarter: 2023Q4

REPORT INFORMATION
  Report Type: Spontaneous
  Country: US (occurrence: None)
  Receive Date: 20231013
  Receipt Date: 20231013
  Transmission Date: 20240109
  Serious: No
  Sender: FDA-Public Use
  Company Number: None

PATIENT
  Age: 75 Year
  Sex: Female
  Weight: 74.39 kg

DRUGS (4)
  1. OTEZLA [Suspect]
     Active Substance: APREMILAST
     Indication: Psoriatic arthropathy
     Dosage: FREQUENCY : TWICE A DAY;?
     Route: 048
     Dates: start: 202307
  2. FLECAINIDE [Suspect]
     Active Substance: FLECAINIDE
  3. DILTIAZEM [Suspect]
     Active Substance: DILTIAZEM
  4. CARVEDILOL [Suspect]
     Active Substance: CARVEDILOL

REACTIONS (2)
  - Atrial fibrillation [None]
  - Therapy cessation [None]
